FAERS Safety Report 20548190 (Version 1)
Quarter: 2022Q1

REPORT INFORMATION
  Report Type: Spontaneous
  Country: NO (occurrence: NO)
  Receive Date: 20220303
  Receipt Date: 20220303
  Transmission Date: 20220423
  Serious: Yes (Hospitalization, Other)
  Sender: FDA-Public Use
  Company Number: None

PATIENT
  Age: 16 Year
  Sex: Male

DRUGS (15)
  1. CLOBAZAM [Interacting]
     Active Substance: CLOBAZAM
     Indication: Epilepsy
     Dosage: 10 MG MORNING, 20 MG EVENING
     Route: 048
  2. THIOPENTAL SODIUM [Interacting]
     Active Substance: THIOPENTAL SODIUM
     Indication: Computerised tomogram
     Dosage: UNKNOWN DOSE MEDICINAL_PRODUCT : TIOPENTAL LIFE MEDICAL
     Route: 042
     Dates: start: 20220208, end: 20220208
  3. MORPHINE SULFATE [Interacting]
     Active Substance: MORPHINE SULFATE
     Indication: Pain prophylaxis
     Dosage: 10 MG UP TO THREE TIMES DAILY, AS NEEDED. 10 MG ADMINISTERED 09:40 AND 12:30. MEDICINAL_PRODUCT : OR
     Route: 048
     Dates: start: 20220207
  4. MIDAZOLAM [Interacting]
     Active Substance: MIDAZOLAM
     Indication: Premedication
     Dosage: GIVEN AT 13:00.
     Route: 048
     Dates: start: 20220208, end: 20220208
  5. DEXMEDETOMIDINE HYDROCHLORIDE [Interacting]
     Active Substance: DEXMEDETOMIDINE HYDROCHLORIDE
     Indication: Premedication
     Dosage: 90 UG, 1X
     Route: 045
     Dates: start: 20220208, end: 20220208
  6. DIATRIZOIC ACID\IODINE\MEGLUMINE [Interacting]
     Active Substance: DIATRIZOIC ACID\IODINE\MEGLUMINE
     Indication: Computerised tomogram
     Dosage: UNK
     Route: 042
  7. MELATONIN ORIFARM [Concomitant]
     Indication: Sleep disorder
     Dosage: EVENING.
     Route: 048
  8. MOVICOL [Concomitant]
     Active Substance: POLYETHYLENE GLYCOL 3350\POTASSIUM CHLORIDE\SODIUM BICARBONATE\SODIUM CHLORIDE
     Indication: Product used for unknown indication
     Dosage: 1.5 SACHETS MORNING
     Route: 048
  9. ESLICARBAZEPINE ACETATE [Concomitant]
     Active Substance: ESLICARBAZEPINE ACETATE
     Indication: Product used for unknown indication
     Dosage: EVENING.
     Route: 048
  10. ESOMEPRAZOLE [Concomitant]
     Active Substance: ESOMEPRAZOLE
     Indication: Product used for unknown indication
     Dosage: MEDICINAL_PRODUCT : NEXIUM
     Route: 048
  11. ACETAMINOPHEN [Concomitant]
     Active Substance: ACETAMINOPHEN
     Indication: Product used for unknown indication
     Dosage: 750 MG UP TO 4 TIMES DAILY
     Route: 048
  12. MIANSERIN [Concomitant]
     Active Substance: MIANSERIN
     Indication: Product used for unknown indication
     Dosage: EVENING
     Route: 048
  13. TRIMEPRAZINE TARTRATE [Concomitant]
     Active Substance: TRIMEPRAZINE TARTRATE
     Indication: Product used for unknown indication
     Dosage: EVENING.
     Route: 048
  14. IBUPROFEN [Concomitant]
     Active Substance: IBUPROFEN
     Indication: Product used for unknown indication
     Dosage: 500 MG UP TO 4 TIMES DAILY.
     Route: 048
  15. ZOFRAN [Concomitant]
     Active Substance: ONDANSETRON HYDROCHLORIDE
     Indication: Product used for unknown indication
     Dosage: 6 MG UP TO 3 TIMES DAILY.
     Route: 048

REACTIONS (2)
  - Drug interaction [Recovering/Resolving]
  - Respiratory depression [Recovering/Resolving]

NARRATIVE: CASE EVENT DATE: 20220208
